FAERS Safety Report 9703967 (Version 1)
Quarter: 2013Q4

REPORT INFORMATION
  Report Type: Spontaneous
  Country: IT (occurrence: IT)
  Receive Date: 20131122
  Receipt Date: 20131122
  Transmission Date: 20140711
  Serious: Yes (Hospitalization)
  Sender: FDA-Public Use
  Company Number: IT-TEVA-444070ISR

PATIENT
  Age: 64 Year
  Sex: Male

DRUGS (8)
  1. METFORMINA CLORIDRATO [Suspect]
     Dosage: 2 DOSAGE FORMS DAILY;
     Route: 048
     Dates: start: 20120903, end: 20130902
  2. AMARYL [Suspect]
     Dosage: 3 MILLIGRAM DAILY;
     Route: 048
     Dates: start: 20120903, end: 20130902
  3. MONOKET 60 MG [Concomitant]
     Dosage: MODIFIED RELEASE TABLET
  4. RANEXA 500 MG [Concomitant]
  5. MODURETIC 5 MG + 50 MG [Concomitant]
  6. COUMADIN 5 MG [Concomitant]
  7. ADALAT CRONO 30 MG [Concomitant]
     Dosage: MODIFIED RELEASE TABLET
  8. PRAVASTATINA SODICA [Concomitant]

REACTIONS (1)
  - Hypoglycaemia [Recovering/Resolving]
